FAERS Safety Report 4377720-0 (Version None)
Quarter: 2004Q2

REPORT INFORMATION
  Report Type: 
  Country: None (occurrence: None)
  Receive Date: 20040608
  Receipt Date: 20040525
  Transmission Date: 20050107
  Serious: Yes (Hospitalization)
  Sender: FDA-Public Use
  Company Number: 04-05-0754

PATIENT
  Age: 29 Year
  Sex: Female

DRUGS (3)
  1. QVAR [Suspect]
  2. ALBUTEROL [Suspect]
     Indication: ASTHMA
  3. OMEPRAZOLE [Concomitant]

REACTIONS (6)
  - BILE DUCT STENOSIS [None]
  - CHOLEDOCHAL CYST [None]
  - FIBROSIS [None]
  - GASTROENTERITIS EOSINOPHILIC [None]
  - HEPATITIS [None]
  - WHITE BLOOD CELL COUNT INCREASED [None]
